FAERS Safety Report 7651493-8 (Version None)
Quarter: 2011Q3

REPORT INFORMATION
  Report Type: 
  Country: None (occurrence: None)
  Receive Date: 20110802
  Receipt Date: 20110724
  Transmission Date: 20111222
  Serious: Yes (Other)
  Sender: FDA-Public Use
  Company Number: PHHY2011MX66912

PATIENT
  Sex: Male

DRUGS (1)
  1. TRILEPTAL [Suspect]
     Dosage: 5 ML, UNK

REACTIONS (4)
  - NIGHTMARE [None]
  - MOVEMENT DISORDER [None]
  - CONFUSIONAL STATE [None]
  - HALLUCINATION [None]
